FAERS Safety Report 4714646-4 (Version None)
Quarter: 2005Q3

REPORT INFORMATION
  Report Type: 
  Country: None (occurrence: None)
  Receive Date: 20050714
  Receipt Date: 20050714
  Transmission Date: 20060218
  Serious: Yes (Hospitalization)
  Sender: FDA-Public Use
  Company Number: None

PATIENT
  Age: 36 Year
  Sex: Male

DRUGS (8)
  1. SOLU-MEDROL [Suspect]
     Indication: ASTHMA
     Dosage: 125 MG IVP IV
     Route: 042
     Dates: start: 20050527, end: 20050527
  2. CEFRIAXONE [Concomitant]
  3. ZITHROMAX [Concomitant]
  4. ALBUTEROL [Concomitant]
  5. ATROVENT NEBS [Concomitant]
  6. ALBUTEROL [Concomitant]
  7. PREDNISONE [Concomitant]
  8. BENADRYL [Concomitant]

REACTIONS (3)
  - ASTHMA [None]
  - RESPIRATORY FAILURE [None]
  - SIMILAR REACTION ON PREVIOUS EXPOSURE TO DRUG [None]
